FAERS Safety Report 15712991 (Version 4)
Quarter: 2019Q3

REPORT INFORMATION
  Report Type: Report from Study
  Country: US (occurrence: US)
  Receive Date: 20181212
  Receipt Date: 20190802
  Transmission Date: 20191004
  Serious: Yes (Other)
  Sender: FDA-Public Use
  Company Number: PHEH2018US051012

PATIENT
  Sex: Female

DRUGS (1)
  1. OMNITROPE [Suspect]
     Active Substance: SOMATROPIN
     Indication: PRODUCT USED FOR UNKNOWN INDICATION
     Dosage: 10 MG, UNK
     Route: 065

REACTIONS (7)
  - Growth hormone deficiency [Unknown]
  - Incorrect dose administered [Unknown]
  - Depression [Unknown]
  - Immune system disorder [Unknown]
  - Memory impairment [Unknown]
  - Pain [Unknown]
  - Arthralgia [Unknown]
